FAERS Safety Report 15558953 (Version 1)
Quarter: 2018Q4

REPORT INFORMATION
  Report Type: Spontaneous
  Country: IE (occurrence: IE)
  Receive Date: 20181029
  Receipt Date: 20181029
  Transmission Date: 20190205
  Serious: Yes (Hospitalization)
  Sender: FDA-Public Use
  Company Number: IE-ROCHE-2206577

PATIENT
  Sex: Female

DRUGS (1)
  1. RITUXIMAB. [Suspect]
     Active Substance: RITUXIMAB
     Indication: MULTIPLE SCLEROSIS
     Dosage: MOST RECENT DOSE IN MAY/2018
     Route: 065
     Dates: start: 201705

REACTIONS (6)
  - Loss of control of legs [Recovered/Resolved]
  - Neutropenia [Recovered/Resolved]
  - Pain [Recovered/Resolved]
  - Osteomyelitis [Recovered/Resolved]
  - Pain in extremity [Recovered/Resolved]
  - Gait inability [Recovered/Resolved]

NARRATIVE: CASE EVENT DATE: 201711
